FAERS Safety Report 24991595 (Version 2)
Quarter: 2025Q1

REPORT INFORMATION
  Report Type: Spontaneous
  Country: RU (occurrence: RU)
  Receive Date: 20250220
  Receipt Date: 20250306
  Transmission Date: 20250409
  Serious: No
  Sender: JAZZ
  Company Number: RU-JAZZ PHARMACEUTICALS-2025-RU-004486

PATIENT

DRUGS (1)
  1. DEFITELIO [Suspect]
     Active Substance: DEFIBROTIDE SODIUM
     Indication: Acute lymphocytic leukaemia

REACTIONS (1)
  - No adverse event [Unknown]
